FAERS Safety Report 6971649-7 (Version None)
Quarter: 2010Q3

REPORT INFORMATION
  Report Type: 
  Country: None (occurrence: None)
  Receive Date: 20100908
  Receipt Date: 20100825
  Transmission Date: 20110219
  Serious: Yes (Other)
  Sender: FDA-Public Use
  Company Number: PHHY2010FR32783

PATIENT
  Sex: Male
  Weight: 80 kg

DRUGS (4)
  1. RASILEZ [Suspect]
     Indication: HYPERTENSION
     Dosage: 150 MG
     Route: 048
     Dates: start: 20100302, end: 20100510
  2. PHYSIOTENS [Concomitant]
     Indication: HYPERTENSION
     Dosage: 0.4 MG  DAILY
     Route: 048
     Dates: start: 20090101
  3. TENSTATEN [Concomitant]
     Indication: HYPERTENSION
     Dosage: 2 DF, QD
     Route: 048
     Dates: start: 20090101
  4. PRAZOSIN HCL [Concomitant]
     Indication: HYPERTENSION
     Dosage: 5 MG DAILY
     Route: 048
     Dates: start: 20090101

REACTIONS (2)
  - PRURITUS [None]
  - RASH GENERALISED [None]
